FAERS Safety Report 4814271-0 (Version None)
Quarter: 2005Q4

REPORT INFORMATION
  Report Type: 
  Country: None (occurrence: None)
  Receive Date: 20051028
  Receipt Date: 20050728
  Transmission Date: 20060501
  Serious: No
  Sender: FDA-Public Use
  Company Number: US-GLAXOSMITHKLINE-A0568103A

PATIENT
  Sex: Female

DRUGS (20)
  1. ADVAIR DISKUS 100/50 [Suspect]
     Indication: ASTHMA
     Dosage: 1PUFF TWICE PER DAY
     Route: 055
  2. PROPRANOLOL [Concomitant]
  3. SYNTHROID [Concomitant]
  4. ACTIVELLA [Concomitant]
  5. ARICEPT [Concomitant]
  6. NAMENDA [Concomitant]
  7. EFFEXOR [Concomitant]
  8. ASTELIN [Concomitant]
  9. SINGULAIR [Concomitant]
  10. ALLEGRA [Concomitant]
  11. ALBUTEROL [Concomitant]
  12. ALPRAZOLAM [Concomitant]
  13. NASONEX [Concomitant]
  14. ASPIRIN [Concomitant]
  15. MULTI-VITAMIN [Concomitant]
  16. ASCORBIC ACID [Concomitant]
  17. VITAMIN E [Concomitant]
  18. GLUCOSAMINE [Concomitant]
  19. FLAX SEED [Concomitant]
  20. CALCIUM GLUCONATE [Concomitant]

REACTIONS (2)
  - CANDIDIASIS [None]
  - PHARMACEUTICAL PRODUCT COMPLAINT [None]
